FAERS Safety Report 14684241 (Version 1)
Quarter: 2018Q1

REPORT INFORMATION
  Report Type: Spontaneous
  Country: US (occurrence: US)
  Receive Date: 20180327
  Receipt Date: 20180327
  Transmission Date: 20180509
  Serious: Yes (Other)
  Sender: FDA-Public Use
  Company Number: PHEH2018US011396

PATIENT
  Age: 34 Year
  Sex: Female
  Weight: 68.27 kg

DRUGS (2)
  1. IODINE. [Suspect]
     Active Substance: IODINE
     Indication: BASEDOW^S DISEASE
     Dosage: 500 UG, UNK (ON AND OFF)
     Route: 048
  2. AMOXICILLIN AND CLAVULANATE POTASSIUM TABLETS USP [Suspect]
     Active Substance: AMOXICILLIN\CLAVULANATE POTASSIUM
     Indication: SINUSITIS
     Dosage: 1 DF, BID (5 TO 6 DAYS)
     Route: 048
     Dates: start: 201802

REACTIONS (4)
  - Sialoadenitis [Not Recovered/Not Resolved]
  - Oral pain [Not Recovered/Not Resolved]
  - Salivary gland enlargement [Not Recovered/Not Resolved]
  - Dysgeusia [Not Recovered/Not Resolved]

NARRATIVE: CASE EVENT DATE: 201802
